FAERS Safety Report 5891595-X (Version None)
Quarter: 2008Q3

REPORT INFORMATION
  Report Type: 
  Country: None (occurrence: None)
  Receive Date: 20080908
  Receipt Date: 20080722
  Transmission Date: 20090109
  Serious: No
  Sender: FDA-Public Use
  Company Number: 002#2#2008-00537

PATIENT
  Age: 42 Year
  Sex: Female
  Weight: 98.8842 kg

DRUGS (20)
  1. NEUPRO [Suspect]
     Indication: PARKINSON'S DISEASE
     Dosage: 2MG/24H, 1 IN 1 D, TRANSDERMAL : 4MG/24H, 1 IN 1 D, TRANSDERMAL : 6MG/24H, 1 IN 1 D, TRANSDERMAL
     Route: 062
     Dates: start: 20070701, end: 20070801
  2. NEUPRO [Suspect]
     Indication: PARKINSON'S DISEASE
     Dosage: 2MG/24H, 1 IN 1 D, TRANSDERMAL : 4MG/24H, 1 IN 1 D, TRANSDERMAL : 6MG/24H, 1 IN 1 D, TRANSDERMAL
     Route: 062
     Dates: start: 20070801, end: 20070801
  3. NEUPRO [Suspect]
     Indication: PARKINSON'S DISEASE
     Dosage: 2MG/24H, 1 IN 1 D, TRANSDERMAL : 4MG/24H, 1 IN 1 D, TRANSDERMAL : 6MG/24H, 1 IN 1 D, TRANSDERMAL
     Route: 062
     Dates: start: 20070801, end: 20070901
  4. NEUPRO [Suspect]
     Indication: PARKINSON'S DISEASE
     Dosage: 2MG/24H, 1 IN 1 D, TRANSDERMAL : 4MG/24H, 1 IN 1 D, TRANSDERMAL : 6MG/24H, 1 IN 1 D, TRANSDERMAL
     Route: 062
     Dates: start: 20070901, end: 20080601
  5. NEUPRO [Suspect]
     Indication: PARKINSON'S DISEASE
     Dosage: 2MG/24H, 1 IN 1 D, TRANSDERMAL : 4MG/24H, 1 IN 1 D, TRANSDERMAL : 6MG/24H, 1 IN 1 D, TRANSDERMAL
     Route: 062
     Dates: start: 20080617
  6. . [Concomitant]
  7. SINEMET [Concomitant]
  8. SINEMET CR [Concomitant]
  9. AZILECT [Concomitant]
  10. RITALIN [Concomitant]
  11. DETROL LA [Concomitant]
  12. FLONASE [Concomitant]
  13. EFFEXOR XR [Concomitant]
  14. KLONOPIN [Concomitant]
  15. IRON SUPPLEMENT [Concomitant]
  16. CALCIUM SUPPLEMENT [Concomitant]
  17. CLIMARA [Concomitant]
  18. OMEGA [Concomitant]
  19. PRIMROSE OIL [Concomitant]
  20. CHINESE HERB [Concomitant]

REACTIONS (2)
  - DYSTONIA [None]
  - HALLUCINATION [None]
